FAERS Safety Report 9240022 (Version 1)
Quarter: 2013Q2

REPORT INFORMATION
  Report Type: Spontaneous
  Country: US (occurrence: US)
  Receive Date: 20130418
  Receipt Date: 20130418
  Transmission Date: 20140414
  Serious: No
  Sender: FDA-Public Use
  Company Number: US-PFIZER INC-2013121406

PATIENT
  Age: 57 Year
  Sex: Male
  Weight: 88 kg

DRUGS (5)
  1. CHANTIX [Suspect]
     Indication: SMOKING CESSATION THERAPY
     Dosage: 0.5 MG, 1X/DAY
     Route: 048
  2. CHANTIX [Suspect]
     Dosage: 0.5 MG (HALF OF 1 MG TABLET), 1X/DAY
     Route: 048
     Dates: start: 20130414
  3. ALTACE [Concomitant]
     Dosage: 10 MG, 1X/DAY
  4. LIPITOR [Concomitant]
     Dosage: 20 MG, UNK
  5. PRILOSEC [Concomitant]
     Dosage: 20 MG, UNK

REACTIONS (2)
  - Initial insomnia [Unknown]
  - Insomnia [Unknown]
